FAERS Safety Report 6896723-5 (Version None)
Quarter: 2010Q3

REPORT INFORMATION
  Report Type: 
  Country: None (occurrence: None)
  Receive Date: 20100802
  Receipt Date: 20070207
  Transmission Date: 20110219
  Serious: No
  Sender: FDA-Public Use
  Company Number: US-PFIZER INC-2007010729

PATIENT
  Sex: Female
  Weight: 90.72 kg

DRUGS (4)
  1. PREGABALIN [Suspect]
     Route: 055
  2. SYNTHROID [Concomitant]
  3. GLIPIZIDE [Concomitant]
  4. ATENOLOL [Concomitant]

REACTIONS (4)
  - ACCIDENTAL EXPOSURE [None]
  - COUGH [None]
  - OROPHARYNGEAL PAIN [None]
  - VOCAL CORD DISORDER [None]
